FAERS Safety Report 5889996 (Version 18)
Quarter: 2013Q4

REPORT INFORMATION
  Report Type: Spontaneous
  Country: US (occurrence: US)
  Receive Date: 20051003
  Receipt Date: 20131010
  Transmission Date: 20140711
  Serious: Yes (Death, Other)
  Sender: FDA-Public Use
  Company Number: PHEH2005US10711

PATIENT
  Age: 58 Year
  Sex: Female
  Weight: 66.21 kg

DRUGS (31)
  1. AREDIA [Suspect]
     Indication: BREAST CANCER
     Dosage: 90 MG, UNK
     Route: 042
     Dates: start: 2000, end: 20020305
  2. AREDIA [Suspect]
     Dosage: 30 MG, UNK
     Dates: start: 20021016, end: 20030730
  3. AREDIA [Suspect]
     Dosage: 60 MG, UNK
     Dates: start: 20030820, end: 20050518
  4. AREDIA [Suspect]
     Dosage: 60 MG, ONCE/SINGLE
     Dates: start: 20021002
  5. ZOMETA [Suspect]
     Indication: BREAST CANCER
     Dosage: 4 MG, UNK
     Route: 042
     Dates: start: 20020327, end: 20020925
  6. HERCEPTIN [Concomitant]
     Indication: BREAST CANCER RECURRENT
  7. EPOETIN NOS [Concomitant]
     Indication: ANAEMIA
  8. VITAMIN B12 [Concomitant]
     Indication: ANAEMIA
     Dosage: 2000 UG, UNK
  9. TAMOXIFEN [Concomitant]
     Indication: BREAST CANCER
     Dates: start: 2000, end: 200502
  10. ARIMIDEX [Concomitant]
     Indication: BREAST CANCER
  11. ROCEPHIN [Concomitant]
  12. DIFLUCAN [Concomitant]
  13. PAXIL [Concomitant]
     Indication: DEPRESSION
     Dosage: 20 MG, UNK
  14. WELLBUTRIN [Concomitant]
     Indication: DEPRESSION
     Dosage: 150 MG, UNK
  15. AMBIEN [Concomitant]
     Indication: SLEEP DISORDER
     Dosage: 10 MG, PRN
     Route: 048
  16. TYLENOL [Concomitant]
     Indication: ARTHRALGIA
  17. KLONOPIN [Concomitant]
     Indication: SLEEP DISORDER
     Dosage: 0.5 MG, QHS
  18. ANZEMET [Concomitant]
     Indication: PROPHYLAXIS OF NAUSEA AND VOMITING
  19. DIGOXIN [Concomitant]
  20. EFFEXOR [Concomitant]
     Dosage: 75 MG, QD
     Route: 048
  21. CARBOPLATIN [Concomitant]
     Indication: CHEMOTHERAPY
  22. BENADRYL [Concomitant]
     Dosage: 25 MG, UNK
  23. ATIVAN [Concomitant]
     Dosage: 1 MG, UNK
  24. SOLU-MEDROL [Concomitant]
     Dosage: 62.5 MG, UNK
  25. VANCOMYCIN [Concomitant]
     Dosage: 150 MG, Q12H
  26. ACYCLOVIR [Concomitant]
     Dosage: 440 MG, QD
  27. LASIX [Concomitant]
  28. PEPCID [Concomitant]
     Dosage: 20 MG, BID
  29. RESTORIL [Concomitant]
     Dosage: 22.5 MG, QHS
     Route: 048
  30. XANAX [Concomitant]
     Dosage: 0.5 MG, TID
     Route: 048
  31. AUGMENTIN - SLOW RELEASE [Concomitant]
     Dosage: 1 DF, BID
     Route: 048

REACTIONS (101)
  - Death [Fatal]
  - Osteonecrosis of jaw [Recovering/Resolving]
  - Osteomyelitis [Unknown]
  - Radiation injury [Unknown]
  - Inflammation [Unknown]
  - Impaired healing [Unknown]
  - Poor peripheral circulation [Recovering/Resolving]
  - Jaw fracture [Unknown]
  - Sensitivity of teeth [Unknown]
  - Oral pain [Unknown]
  - Exostosis [Unknown]
  - Bone density decreased [Unknown]
  - Bone disorder [Unknown]
  - Pyrexia [Unknown]
  - Tenderness [Unknown]
  - Tooth abscess [Unknown]
  - Lymphadenopathy [Unknown]
  - Purulent discharge [Unknown]
  - Fibrosis [Unknown]
  - Infection [Unknown]
  - Primary sequestrum [Unknown]
  - Injury [Unknown]
  - Swelling [Recovering/Resolving]
  - Acute myeloid leukaemia [Unknown]
  - Platelet count decreased [Unknown]
  - Tumour invasion [Unknown]
  - Bone marrow failure [Unknown]
  - Cerebral ischaemia [Recovering/Resolving]
  - Vertigo [Unknown]
  - Herpes zoster [Recovering/Resolving]
  - Furuncle [Unknown]
  - Staphylococcal abscess [Unknown]
  - Atelectasis [Unknown]
  - Pleural effusion [Unknown]
  - Ascites [Unknown]
  - Neutropenia [Unknown]
  - Hepatic steatosis [Unknown]
  - Arrhythmia [Unknown]
  - Asthma [Unknown]
  - Cerebrovascular accident [Unknown]
  - Spinal osteoarthritis [Unknown]
  - Haemorrhoids [Unknown]
  - Urinary tract infection [Unknown]
  - Neuropathy peripheral [Unknown]
  - Decreased appetite [Unknown]
  - Hypokalaemia [Unknown]
  - Hyperglycaemia [Unknown]
  - Exposed bone in jaw [Unknown]
  - Swelling face [Unknown]
  - Hypoaesthesia [Unknown]
  - Bacterial vaginosis [Unknown]
  - Atrophic vulvovaginitis [Unknown]
  - Pain in jaw [Unknown]
  - Fistula [Unknown]
  - Paraesthesia [Unknown]
  - Aortic valve incompetence [Unknown]
  - Pneumonitis [Unknown]
  - Osteopenia [Unknown]
  - Lymph node calcification [Unknown]
  - Cholelithiasis [Unknown]
  - Tricuspid valve incompetence [Unknown]
  - Pulmonary valve incompetence [Unknown]
  - Bone scan abnormal [Unknown]
  - Pulpitis dental [Unknown]
  - Dental caries [Unknown]
  - Insomnia [Unknown]
  - Sinus disorder [Unknown]
  - Cough [Unknown]
  - Laryngitis [Unknown]
  - Vocal cord thickening [Unknown]
  - Alopecia [Unknown]
  - Upper respiratory tract infection [Unknown]
  - Nasal congestion [Unknown]
  - Urticaria [Unknown]
  - Rhinorrhoea [Unknown]
  - Pruritus [Unknown]
  - Rash [Unknown]
  - Hypotension [Unknown]
  - Fungaemia [Unknown]
  - Device related infection [Unknown]
  - Cellulitis [Unknown]
  - Enterococcal infection [Unknown]
  - Urinary tract infection enterococcal [Unknown]
  - Palatal disorder [Unknown]
  - Mouth haemorrhage [Unknown]
  - Bone fragmentation [Unknown]
  - Osteosclerosis [Unknown]
  - Candida infection [Unknown]
  - Gastrointestinal haemorrhage [Unknown]
  - Hypoxia [Unknown]
  - Bile duct obstruction [Unknown]
  - Emphysema [Unknown]
  - Dyspnoea [Unknown]
  - Oral pustule [Unknown]
  - Renal failure [Unknown]
  - Fall [Unknown]
  - Cardiomyopathy [Unknown]
  - Sinus tachycardia [Unknown]
  - Hepatomegaly [Unknown]
  - Osteoarthritis [Unknown]
  - Myelodysplastic syndrome [Unknown]
